FAERS Safety Report 7794943-9 (Version None)
Quarter: 2011Q3

REPORT INFORMATION
  Report Type: 
  Country: None (occurrence: None)
  Receive Date: 20110930
  Receipt Date: 20110927
  Transmission Date: 20111222
  Serious: Yes (Other)
  Sender: FDA-Public Use
  Company Number: GER/UKI/11/0021136

PATIENT
  Age: 26 Year
  Sex: Male

DRUGS (4)
  1. FLUOXETINE HYDROCHLORIDE [Suspect]
     Indication: DEPRESSION
     Dosage: 20 MG, 1 IN 1 D ; 40 MG, 1 IN 1 D ; 60 MG, 1 IN 1 D ; 80 MG, 1 IN 1 D
     Dates: start: 20100101
  2. FLUOXETINE HYDROCHLORIDE [Suspect]
     Indication: DEPRESSION
     Dosage: 20 MG, 1 IN 1 D ; 40 MG, 1 IN 1 D ; 60 MG, 1 IN 1 D ; 80 MG, 1 IN 1 D
     Dates: start: 20100101
  3. SERTRALINE HYDROCHLORIDE [Concomitant]
  4. QUETIAPINE FUMARATE [Concomitant]

REACTIONS (2)
  - CONDITION AGGRAVATED [None]
  - PSYCHOTIC DISORDER [None]
